FAERS Safety Report 8136262-7 (Version None)
Quarter: 2012Q1

REPORT INFORMATION
  Report Type: 
  Country: None (occurrence: None)
  Receive Date: 20120214
  Receipt Date: 20120206
  Transmission Date: 20120608
  Serious: Yes (Other)
  Sender: FDA-Public Use
  Company Number: PT-ABBOTT-10P-130-0643984-00

PATIENT
  Sex: Female

DRUGS (1)
  1. LEUPROLIDE ACETATE [Suspect]
     Indication: PRECOCIOUS PUBERTY
     Dates: end: 20100401

REACTIONS (5)
  - LIMB DEFORMITY [None]
  - ESCHAR [None]
  - EMOTIONAL DISTRESS [None]
  - INJECTION SITE ABSCESS [None]
  - SOFT TISSUE NECROSIS [None]
